FAERS Safety Report 4922685-3 (Version None)
Quarter: 2006Q1

REPORT INFORMATION
  Report Type: 
  Country: None (occurrence: None)
  Receive Date: 20060224
  Receipt Date: 20060215
  Transmission Date: 20060701
  Serious: Yes (Congenital Anomaly)
  Sender: FDA-Public Use
  Company Number: US-ABBOTT-06P-163-0325051-00

PATIENT

DRUGS (7)
  1. NORVIR [Suspect]
     Indication: DRUG EXPOSURE DURING PREGNANCY
  2. ATAZANAVIR [Suspect]
     Indication: DRUG EXPOSURE DURING PREGNANCY
  3. LAMIVUDINE [Suspect]
     Indication: DRUG EXPOSURE DURING PREGNANCY
  4. VIREAD [Suspect]
     Indication: DRUG EXPOSURE DURING PREGNANCY
  5. NELFINAVIR MESILATE [Suspect]
     Indication: DRUG EXPOSURE DURING PREGNANCY
  6. LAMIVUDINE + ZIDOVUDINE [Suspect]
     Indication: DRUG EXPOSURE DURING PREGNANCY
  7. BETOLOL [Suspect]
     Indication: DRUG EXPOSURE DURING PREGNANCY

REACTIONS (1)
  - POLYDACTYLY [None]
